FAERS Safety Report 8531571 (Version 5)
Quarter: 2012Q4

REPORT INFORMATION
  Report Type: 
  Country: AU (occurrence: AU)
  Receive Date: 20120426
  Receipt Date: 20121228
  Transmission Date: 20130627
  Serious: Yes (Other)
  Sender: FDA-Public Use
  Company Number: AU-ASTRAZENECA-2012SE25395

PATIENT
  Age: 441 Month
  Sex: Female

DRUGS (3)
  1. PULMICORT [Suspect]
     Route: 055
     Dates: start: 201106, end: 20110615
  2. RHINOCORT [Suspect]
     Route: 045
     Dates: end: 20110915
  3. NASONEX [Concomitant]

REACTIONS (19)
  - Exposure during pregnancy [Recovered/Resolved]
  - Abortion spontaneous [Recovered/Resolved]
  - Benign hydatidiform mole [Recovered/Resolved]
  - Abdominal pain [Recovered/Resolved]
  - Eye allergy [Recovered/Resolved]
  - Breast discharge [Unknown]
  - Lactation disorder [Unknown]
  - Dry mouth [Recovered/Resolved]
  - Alopecia [Recovered/Resolved]
  - Menstrual disorder [Recovered/Resolved]
  - Night sweats [Recovered/Resolved]
  - Sinusitis [Recovered/Resolved]
  - Thyroid cyst [Recovered/Resolved]
  - Muscular weakness [Recovered/Resolved]
  - Pertussis [Recovered/Resolved]
  - Depression [Recovered/Resolved]
  - Nasal dryness [Recovered/Resolved]
  - Aphonia [Recovered/Resolved]
  - Epistaxis [Recovered/Resolved]
